FAERS Safety Report 24449561 (Version 1)
Quarter: 2024Q4

REPORT INFORMATION
  Report Type: Report from Study
  Country: CO (occurrence: CO)
  Receive Date: 20241017
  Receipt Date: 20241017
  Transmission Date: 20250114
  Serious: Yes (Hospitalization)
  Sender: AEGERION
  Company Number: CO-CHIESI PHARMA JAPAN K.K.-AEGR007466

PATIENT

DRUGS (1)
  1. METRELEPTIN [Suspect]
     Active Substance: METRELEPTIN
     Indication: Acquired generalised lipodystrophy
     Dosage: 0.74 MILLILITER
     Route: 058
     Dates: start: 20180803

REACTIONS (1)
  - Laboratory test abnormal [Unknown]
